FAERS Safety Report 17432415 (Version 2)
Quarter: 2020Q3

REPORT INFORMATION
  Report Type: Spontaneous
  Country: JP (occurrence: JP)
  Receive Date: 20200218
  Receipt Date: 20200716
  Transmission Date: 20201102
  Serious: Yes (Life-Threatening, Hospitalization, Other)
  Sender: FDA-Public Use
  Company Number: JP-009507513-2002JPN001419J

PATIENT
  Age: 55 Year
  Sex: Female
  Weight: 45 kg

DRUGS (12)
  1. KEYTRUDA [Suspect]
     Active Substance: PEMBROLIZUMAB
     Indication: NON-SMALL CELL LUNG CANCER
     Dosage: 200 MILLIGRAM, Q3W
     Route: 041
     Dates: start: 20191007, end: 20191007
  2. MORPHINE HYDROCHLORIDE HYDRATE [Concomitant]
     Active Substance: MORPHINE HYDROCHLORIDE
     Dosage: WHEN IN PAIN OR WHEN BREATHING IS DIFFICULT
     Route: 058
  3. GLUCOS FRESENIUS KABI [Concomitant]
     Dosage: UNK UNK, QD
     Route: 041
  4. CARBOPLATIN. [Concomitant]
     Active Substance: CARBOPLATIN
     Indication: NON-SMALL CELL LUNG CANCER
     Dosage: 285 MILLIGRAM, ONCE
     Route: 041
     Dates: start: 20191007, end: 20191007
  5. SOLDEM 3A [Concomitant]
     Active Substance: CARBOHYDRATES\POTASSIUM CHLORIDE\SODIUM CHLORIDE\SODIUM LACTATE
     Dosage: 1 UNK
     Route: 041
  6. OCTREOTIDE. [Concomitant]
     Active Substance: OCTREOTIDE
     Dosage: UNK UNK, ONCE
     Route: 065
  7. ISOTONIC SODIUM CHLORIDE SOLUTION HIKARI [Concomitant]
     Dosage: WHEN IN PAIN OR WHEN BREATHING IS DIFFICULT
     Route: 058
  8. MEROPENEM. [Concomitant]
     Active Substance: MEROPENEM
     Dosage: UNK, TID
     Route: 041
  9. NEUTROGIN [Concomitant]
     Active Substance: LENOGRASTIM
     Dosage: UNK UNK, QD
     Route: 058
  10. ALIMTA [Concomitant]
     Active Substance: PEMETREXED DISODIUM
     Indication: NON-SMALL CELL LUNG CANCER
     Dosage: 775 MILLIGRAM, Q3W
     Route: 041
     Dates: start: 20191007, end: 20191007
  11. ISOTONIC SODIUM CHLORIDE SOLUTION HIKARI [Concomitant]
     Dosage: UNK
     Route: 041
  12. SODIUM CHLORIDE. [Concomitant]
     Active Substance: SODIUM CHLORIDE
     Dosage: UNK
     Route: 041

REACTIONS (1)
  - Renal failure [Recovered/Resolved]

NARRATIVE: CASE EVENT DATE: 20191021
